FAERS Safety Report 4320333-7 (Version None)
Quarter: 2004Q1

REPORT INFORMATION
  Report Type: 
  Country: None (occurrence: None)
  Receive Date: 20040317
  Receipt Date: 20040308
  Transmission Date: 20041129
  Serious: Yes (Hospitalization)
  Sender: FDA-Public Use
  Company Number: AU-JNJFOC-20040302584

PATIENT
  Age: 63 Year

DRUGS (7)
  1. TRAMAL (TRAMADOL HYDROCHLORIDE) UNSPECIFIED [Suspect]
     Indication: GENERAL SYMPTOM
     Dosage: 200 MG, IN 1 DAY,ORAL
     Route: 048
     Dates: start: 20021204, end: 20021205
  2. VALPROATE SODIUM [Concomitant]
  3. THYROXINE (LEVOTHYROXINE SODIUM) [Concomitant]
  4. PREMARIN [Concomitant]
  5. PREDNISOLONE [Concomitant]
  6. FUROSEMIDE [Concomitant]
  7. OLANZAPINE [Concomitant]

REACTIONS (3)
  - DEPRESSED LEVEL OF CONSCIOUSNESS [None]
  - HYPERHIDROSIS [None]
  - SOMNOLENCE [None]
